FAERS Safety Report 4936858-7 (Version None)
Quarter: 2006Q1

REPORT INFORMATION
  Report Type: 
  Country: None (occurrence: None)
  Receive Date: 20060307
  Receipt Date: 20060301
  Transmission Date: 20060701
  Serious: Yes (Hospitalization)
  Sender: FDA-Public Use
  Company Number: GB-MERCK-0603GBR00013

PATIENT
  Age: 73 Year
  Sex: Female

DRUGS (3)
  1. TRUSOPT [Suspect]
     Route: 047
  2. BENDROFLUMETHIAZIDE [Concomitant]
     Route: 065
  3. ATORVASTATIN CALCIUM [Concomitant]
     Route: 048

REACTIONS (2)
  - HYPOCALCAEMIA [None]
  - HYPONATRAEMIA [None]
